FAERS Safety Report 6095797-1 (Version None)
Quarter: 2009Q1

REPORT INFORMATION
  Report Type: 
  Country: None (occurrence: None)
  Receive Date: 20090227
  Receipt Date: 20080617
  Transmission Date: 20090719
  Serious: No
  Sender: FDA-Public Use
  Company Number: A0733425A

PATIENT
  Age: 63 Year
  Sex: Female

DRUGS (10)
  1. LAMICTAL [Suspect]
     Indication: DEPRESSION
     Dosage: 200MG PER DAY
     Route: 048
     Dates: start: 20060101
  2. WELLBUTRIN XL [Concomitant]
  3. KLONOPIN [Concomitant]
  4. EFFEXOR XR [Concomitant]
  5. POLYGAM S/D [Concomitant]
  6. CONCERTA [Concomitant]
  7. TRAZODONE HCL [Concomitant]
  8. MELATONIN [Concomitant]
  9. SAM-E [Concomitant]
  10. THYROID TAB [Concomitant]

REACTIONS (1)
  - RED BLOOD CELL SEDIMENTATION RATE INCREASED [None]
